FAERS Safety Report 22813390 (Version 3)
Quarter: 2024Q3

REPORT INFORMATION
  Report Type: Spontaneous
  Country: US (occurrence: US)
  Receive Date: 20230811
  Receipt Date: 20240710
  Transmission Date: 20241016
  Serious: No
  Sender: ROCHE
  Company Number: US-ROCHE-3139929

PATIENT
  Age: 71 Year
  Sex: Female
  Weight: 66.68 kg

DRUGS (4)
  1. ALECENSA [Suspect]
     Active Substance: ALECTINIB HYDROCHLORIDE
     Indication: Squamous cell carcinoma of lung
     Route: 048
     Dates: start: 20220521
  2. ALECENSA [Suspect]
     Active Substance: ALECTINIB HYDROCHLORIDE
     Indication: Illness
     Route: 048
     Dates: start: 20220520
  3. ALECENSA [Suspect]
     Active Substance: ALECTINIB HYDROCHLORIDE
     Indication: Non-small cell lung cancer
     Route: 048
     Dates: start: 202205
  4. ALECENSA [Suspect]
     Active Substance: ALECTINIB HYDROCHLORIDE
     Indication: Bronchial carcinoma
     Route: 048

REACTIONS (24)
  - Fatigue [Recovering/Resolving]
  - Dry skin [Recovering/Resolving]
  - Swelling [Recovering/Resolving]
  - Constipation [Not Recovered/Not Resolved]
  - Paranasal sinus hyposecretion [Not Recovered/Not Resolved]
  - Lung disorder [Unknown]
  - Hypoaesthesia [Not Recovered/Not Resolved]
  - Paraesthesia [Not Recovered/Not Resolved]
  - Hypoacusis [Not Recovered/Not Resolved]
  - Dry mouth [Not Recovered/Not Resolved]
  - Intention tremor [Not Recovered/Not Resolved]
  - Bladder pain [Not Recovered/Not Resolved]
  - Blood creatine phosphokinase increased [Recovered/Resolved]
  - Cystitis interstitial [Unknown]
  - Bladder discomfort [Unknown]
  - Depression [Unknown]
  - Rash [Unknown]
  - Visual impairment [Unknown]
  - Tinnitus [Unknown]
  - Hypoacusis [Unknown]
  - Dry eye [Unknown]
  - Bladder disorder [Unknown]
  - Muscular weakness [Unknown]
  - Wheezing [Unknown]
